FAERS Safety Report 9153434 (Version 1)
Quarter: 2013Q1

REPORT INFORMATION
  Report Type: Spontaneous
  Country: US (occurrence: None)
  Receive Date: 20130204
  Receipt Date: 20130204
  Transmission Date: 20140127
  Serious: Yes (Hospitalization)
  Sender: FDA-Public Use
  Company Number: TCI2013A00282

PATIENT
  Age: 90 Year
  Sex: Male

DRUGS (5)
  1. NESINA [Suspect]
     Indication: DIABETES MELLITUS
     Route: 048
     Dates: start: 20121115, end: 20121128
  2. ACTOS [Concomitant]
  3. METGLUCO (METFORMIN HYDROCHLORIDE) [Concomitant]
  4. DIOVAN (VALSARTAN) [Concomitant]
  5. NORVASC OD (AMODIPINE BESILATE) [Concomitant]

REACTIONS (1)
  - Pancreatitis acute [None]
